FAERS Safety Report 8217863-4 (Version None)
Quarter: 2012Q1

REPORT INFORMATION
  Report Type: 
  Country: None (occurrence: None)
  Receive Date: 20120319
  Receipt Date: 20120309
  Transmission Date: 20120608
  Serious: Yes (Other)
  Sender: FDA-Public Use
  Company Number: US-BAYER-2012-025520

PATIENT
  Sex: Female

DRUGS (1)
  1. YAZ [Suspect]
     Dosage: UNK
     Route: 048
     Dates: start: 20100220, end: 20101001

REACTIONS (3)
  - CHOLELITHIASIS [None]
  - CHOLECYSTITIS INFECTIVE [None]
  - GALLSTONE ILEUS [None]
